FAERS Safety Report 5693126-6 (Version None)
Quarter: 2008Q2

REPORT INFORMATION
  Report Type: 
  Country: None (occurrence: None)
  Receive Date: 20080402
  Receipt Date: 20080402
  Transmission Date: 20081010
  Serious: Yes (Death)
  Sender: FDA-Public Use
  Company Number: None

PATIENT
  Age: 70 Year
  Sex: Male

DRUGS (2)
  1. OMNIPAQUE 350 [Suspect]
     Indication: ABDOMINAL PAIN
     Dosage: 100MLS X1 IV
     Route: 042
     Dates: start: 20071226, end: 20071226
  2. OMNIPAQUE 350 [Suspect]
     Indication: COMPUTERISED TOMOGRAM
     Dosage: 100MLS X1 IV
     Route: 042
     Dates: start: 20071226, end: 20071226

REACTIONS (5)
  - ACUTE CORONARY SYNDROME [None]
  - ANAPHYLACTIC REACTION [None]
  - CARDIO-RESPIRATORY ARREST [None]
  - HYPOTENSION [None]
  - UNRESPONSIVE TO STIMULI [None]
